FAERS Safety Report 19221387 (Version 1)
Quarter: 2021Q2

REPORT INFORMATION
  Report Type: Report from Study
  Country: US (occurrence: US)
  Receive Date: 20210505
  Receipt Date: 20210505
  Transmission Date: 20210717
  Serious: Yes (Other)
  Sender: FDA-Public Use
  Company Number: NVSC2021US093194

PATIENT
  Sex: Female

DRUGS (1)
  1. PIQRAY [Suspect]
     Active Substance: ALPELISIB
     Indication: BREAST CANCER
     Dosage: 200 MG, QD
     Route: 048
     Dates: start: 202104

REACTIONS (5)
  - Malignant neoplasm progression [Unknown]
  - Dry mouth [Unknown]
  - Breast cancer [Unknown]
  - Malaise [Unknown]
  - Diarrhoea [Unknown]
